FAERS Safety Report 8487212 (Version 4)
Quarter: 2015Q4

REPORT INFORMATION
  Report Type: Spontaneous
  Country: US (occurrence: US)
  Receive Date: 20120402
  Receipt Date: 20151218
  Transmission Date: 20160305
  Serious: Yes (Hospitalization, Congenital Anomaly, Other)
  Sender: FDA-Public Use
  Company Number: US-ELI_LILLY_AND_COMPANY-US201203008618

PATIENT
  Age: 0 Day

DRUGS (4)
  1. PROZAC WEEKLY [Suspect]
     Active Substance: FLUOXETINE HYDROCHLORIDE
     Indication: DEPRESSION
     Dosage: 90 MG, WEEKLY (1/W)
     Route: 064
  2. TRAZODONE [Concomitant]
     Active Substance: TRAZODONE HYDROCHLORIDE
  3. PAROXETINE [Concomitant]
     Active Substance: PAROXETINE\PAROXETINE HYDROCHLORIDE
  4. MARIJUANA [Concomitant]
     Active Substance: CANNABIS SATIVA SUBSP. INDICA TOP

REACTIONS (8)
  - Transient tachypnoea of the newborn [Unknown]
  - Foetal growth restriction [Unknown]
  - Cleft lip and palate [Unknown]
  - Oligohydramnios [Unknown]
  - Velopharyngeal incompetence [Unknown]
  - Feeding disorder of infancy or early childhood [Unknown]
  - Sleep apnoea syndrome [Unknown]
  - Foetal exposure during pregnancy [Unknown]

NARRATIVE: CASE EVENT DATE: 20070624
